FAERS Safety Report 12047170 (Version 1)
Quarter: 2016Q1

REPORT INFORMATION
  Report Type: Spontaneous
  Country: US (occurrence: US)
  Receive Date: 20160208
  Receipt Date: 20160208
  Transmission Date: 20160526
  Serious: No
  Sender: FDA-Public Use
  Company Number: US-BIOGEN-2016BI00179502

PATIENT
  Sex: Female

DRUGS (1)
  1. AVONEX [Suspect]
     Active Substance: INTERFERON BETA-1A
     Indication: MULTIPLE SCLEROSIS
     Dates: start: 20100726, end: 20150202

REACTIONS (4)
  - Hypoaesthesia [Unknown]
  - Central nervous system lesion [Unknown]
  - Paraesthesia [Unknown]
  - Influenza like illness [Unknown]
